FAERS Safety Report 12667187 (Version 1)
Quarter: 2016Q3

REPORT INFORMATION
  Report Type: Spontaneous
  Country: US (occurrence: None)
  Receive Date: 20160818
  Receipt Date: 20160818
  Transmission Date: 20161109
  Serious: No
  Sender: FDA-Public Use
  Company Number: None

PATIENT
  Age: 51 Year
  Sex: Female
  Weight: 117.94 kg

DRUGS (6)
  1. ETODOLAC. [Concomitant]
     Active Substance: ETODOLAC
  2. TRIAMTERENE HCTZ [Concomitant]
     Active Substance: HYDROCHLOROTHIAZIDE\TRIAMTERENE
  3. LISINOPRIL. [Concomitant]
     Active Substance: LISINOPRIL
  4. ACTEMRA [Suspect]
     Active Substance: TOCILIZUMAB
     Indication: ARTHROPATHY
     Dosage: 1 INJECTION(S) WEEKLY TO BIMONTH GIVEN INTO/UNDER THE SKIN
     Route: 058
     Dates: start: 20160411, end: 20160606
  5. EFFEXOR (VENLAFAXINE HCL) [Concomitant]
  6. ZETIA [Concomitant]
     Active Substance: EZETIMIBE

REACTIONS (2)
  - Flushing [None]
  - Hot flush [None]

NARRATIVE: CASE EVENT DATE: 20160412
